FAERS Safety Report 24659974 (Version 1)
Quarter: 2024Q4

REPORT INFORMATION
  Report Type: Spontaneous
  Country: FR (occurrence: FR)
  Receive Date: 20241125
  Receipt Date: 20241125
  Transmission Date: 20250115
  Serious: Yes (Other)
  Sender: BRISTOL-MYERS SQUIBB COMPANY
  Company Number: None

PATIENT
  Age: 67 Year
  Sex: Male
  Weight: 77 kg

DRUGS (1)
  1. AZTREONAM [Suspect]
     Active Substance: AZTREONAM
     Indication: Sepsis
     Dosage: UNKNOWN
     Route: 042
     Dates: start: 20241031

REACTIONS (2)
  - Agranulocytosis [Recovering/Resolving]
  - Thrombocytopenia [Recovered/Resolved]

NARRATIVE: CASE EVENT DATE: 20241101
